FAERS Safety Report 21761263 (Version 2)
Quarter: 2023Q1

REPORT INFORMATION
  Report Type: Report from Study
  Country: CA (occurrence: CA)
  Receive Date: 20221221
  Receipt Date: 20230202
  Transmission Date: 20230417
  Serious: Yes (Hospitalization)
  Sender: FDA-Public Use
  Company Number: CA-JNJFOC-20221236778

PATIENT
  Age: 40 Year
  Sex: Female
  Weight: 50 kg

DRUGS (2)
  1. REMICADE [Suspect]
     Active Substance: INFLIXIMAB
     Indication: Crohn^s disease
     Route: 042
     Dates: start: 20150401
  2. REMICADE [Suspect]
     Active Substance: INFLIXIMAB
     Dosage: A RE-LOAD OF WEEK 0, AND 2 AND THEN MAINTENANCE AT EVERY 4 WEEKS
     Route: 042

REACTIONS (5)
  - Pneumonia [Unknown]
  - Bacteraemia [Unknown]
  - Meningitis [Unknown]
  - Lithiasis [Unknown]
  - Pleural effusion [Unknown]

NARRATIVE: CASE EVENT DATE: 20221201
